FAERS Safety Report 6202987-3 (Version None)
Quarter: 2009Q2

REPORT INFORMATION
  Report Type: 
  Country: None (occurrence: None)
  Receive Date: 20090520
  Receipt Date: 20090505
  Transmission Date: 20091009
  Serious: Yes (Hospitalization)
  Sender: FDA-Public Use
  Company Number: 20090157

PATIENT
  Age: 75 Year
  Sex: Female

DRUGS (2)
  1. EPINEPHRINE [Suspect]
     Indication: POLYPECTOMY
     Dosage: 4 ML AND 20 ML
  2. ENALAPRIL [Concomitant]

REACTIONS (5)
  - ATRIAL FIBRILLATION [None]
  - BLOOD PRESSURE INCREASED [None]
  - HEART RATE INCREASED [None]
  - HYPERTENSIVE CARDIOMYOPATHY [None]
  - TRANSIENT ISCHAEMIC ATTACK [None]
